FAERS Safety Report 23391473 (Version 1)
Quarter: 2024Q1

REPORT INFORMATION
  Report Type: Spontaneous
  Country: US (occurrence: US)
  Receive Date: 20240111
  Receipt Date: 20240111
  Transmission Date: 20240410
  Serious: No
  Sender: FDA-Public Use
  Company Number: US-SA-SAC20240105001351

PATIENT
  Age: 11 Year
  Sex: Female

DRUGS (2)
  1. DUPIXENT [Suspect]
     Active Substance: DUPILUMAB
     Indication: Eczema
     Dosage: 300MG/2ML 2 PENS ON DAY 1
     Route: 058
     Dates: start: 20230826, end: 20230826
  2. DUPIXENT [Suspect]
     Active Substance: DUPILUMAB
     Indication: Asthma
     Dosage: 300MG/2ML 1 PEN EVERY 14 DAYS THEREAFTER
     Route: 058

REACTIONS (2)
  - Eczema [Not Recovered/Not Resolved]
  - Intentional dose omission [Unknown]
